FAERS Safety Report 4747953-X (Version None)
Quarter: 2005Q3

REPORT INFORMATION
  Report Type: 
  Country: None (occurrence: None)
  Receive Date: 20050816
  Receipt Date: 20050730
  Transmission Date: 20060218
  Serious: Yes (Other)
  Sender: FDA-Public Use
  Company Number: 2005085333

PATIENT
  Age: 35 Year
  Sex: Female
  Weight: 68.0396 kg

DRUGS (3)
  1. CELEBREX [Suspect]
     Dosage: 200 MG (200 MG, 1 IN 1 D), ORAL
     Route: 048
     Dates: start: 20040805
  2. DRUG, UNSPECIFIED (DRUG, UNSPECIFIED) [Suspect]
     Indication: ABDOMINAL PAIN
  3. DIET FORMULATIONS FOR TREATMENT OF OBESITY (DIET FORMULATION FOR TREAT [Suspect]

REACTIONS (8)
  - ABDOMINAL PAIN [None]
  - ARTHRALGIA [None]
  - DIARRHOEA [None]
  - DRUG EFFECT DECREASED [None]
  - DYSPEPSIA [None]
  - HYSTERECTOMY [None]
  - KNEE OPERATION [None]
  - MUSCLE DISORDER [None]
